FAERS Safety Report 25111465 (Version 1)
Quarter: 2025Q1

REPORT INFORMATION
  Report Type: Report from Study
  Country: US (occurrence: US)
  Receive Date: 20250324
  Receipt Date: 20250324
  Transmission Date: 20250409
  Serious: Yes (Other)
  Sender: SANOFI AVENTIS
  Company Number: US-SA-2025SA082970

PATIENT
  Age: 46 Year
  Sex: Female

DRUGS (13)
  1. ENOXAPARIN SODIUM [Suspect]
     Active Substance: ENOXAPARIN SODIUM
     Indication: Product used for unknown indication
     Route: 065
  2. PREDNISONE [Suspect]
     Active Substance: PREDNISONE
     Indication: Product used for unknown indication
     Route: 065
  3. APIXABAN [Suspect]
     Active Substance: APIXABAN
     Indication: Anticoagulant therapy
     Route: 065
  4. DIETARY SUPPLEMENT\RESVERATROL [Suspect]
     Active Substance: DIETARY SUPPLEMENT\RESVERATROL
     Indication: Anticoagulant therapy
     Dosage: 2 DF, BID
     Route: 065
  5. NATTOKINASE [Suspect]
     Active Substance: NATTOKINASE
     Indication: Anticoagulant therapy
     Dosage: 2 DF, TID
     Route: 065
  6. NATTOKINASE [Suspect]
     Active Substance: NATTOKINASE
     Dosage: 1 DF, TID
     Route: 065
  7. HEPARIN [Suspect]
     Active Substance: HEPARIN SODIUM
     Indication: Product used for unknown indication
  8. BESREMI [Suspect]
     Active Substance: ROPEGINTERFERON ALFA-2B-NJFT
     Indication: Essential thrombocythaemia
     Dosage: 100 UG, QOW
     Route: 065
     Dates: start: 20240729
  9. BESREMI [Suspect]
     Active Substance: ROPEGINTERFERON ALFA-2B-NJFT
     Dosage: 150 UG, QOW
     Route: 065
  10. BESREMI [Suspect]
     Active Substance: ROPEGINTERFERON ALFA-2B-NJFT
     Route: 065
  11. NATTOKINASE [Concomitant]
     Active Substance: NATTOKINASE
     Route: 065
  12. APIXABAN [Concomitant]
     Active Substance: APIXABAN
  13. DIETARY SUPPLEMENT\RESVERATROL [Concomitant]
     Active Substance: DIETARY SUPPLEMENT\RESVERATROL
     Route: 065

REACTIONS (17)
  - Haemoptysis [Recovering/Resolving]
  - Tenderness [Recovering/Resolving]
  - Contusion [Recovering/Resolving]
  - Chest pain [Recovering/Resolving]
  - Menstruation irregular [Recovering/Resolving]
  - Nodule [Recovering/Resolving]
  - Disorientation [Recovering/Resolving]
  - Arrhythmia [Recovering/Resolving]
  - Back pain [Recovering/Resolving]
  - Injection site reaction [Recovering/Resolving]
  - Epistaxis [Recovering/Resolving]
  - Platelet count decreased [Recovering/Resolving]
  - Dizziness [Recovering/Resolving]
  - Headache [Recovering/Resolving]
  - Off label use [Unknown]
  - Therapy interrupted [Unknown]
  - Insurance issue [Unknown]

NARRATIVE: CASE EVENT DATE: 20240101
